FAERS Safety Report 5556845-8 (Version None)
Quarter: 2007Q4

REPORT INFORMATION
  Report Type: 
  Country: None (occurrence: None)
  Receive Date: 20071210
  Receipt Date: 20071210
  Transmission Date: 20080405
  Serious: Yes (Hospitalization)
  Sender: FDA-Public Use
  Company Number: None

PATIENT
  Sex: Male
  Weight: 96.8 kg

DRUGS (8)
  1. PEG-INTRON [Suspect]
     Dosage: 312 MCG
  2. ADVIL LIQUI-GELS [Concomitant]
  3. DARVOCET [Concomitant]
  4. LEXAPRO [Concomitant]
  5. LORTAB [Concomitant]
  6. PEPCID [Concomitant]
  7. SENEKOT-S [Concomitant]
  8. ZOFRAN [Concomitant]

REACTIONS (1)
  - MENTAL STATUS CHANGES [None]
